FAERS Safety Report 5149274-2 (Version None)
Quarter: 2006Q4

REPORT INFORMATION
  Report Type: 
  Country: None (occurrence: None)
  Receive Date: 20061113
  Receipt Date: 20061009
  Transmission Date: 20070319
  Serious: Yes (Other)
  Sender: FDA-Public Use
  Company Number: CN-GLAXOSMITHKLINE-B0441662A

PATIENT
  Age: 54 Year
  Sex: Male
  Weight: 68 kg

DRUGS (6)
  1. HEPTODIN [Suspect]
     Indication: HEPATIC CIRRHOSIS
     Dosage: 100MG PER DAY
     Route: 048
     Dates: start: 20060908, end: 20060914
  2. HEPSERA [Concomitant]
     Dosage: 10MG PER DAY
     Route: 065
  3. DIAMMONIUM GLYCYRRHIZINATE [Concomitant]
     Indication: HEPATIC CIRRHOSIS
     Dosage: 150MG PER DAY
     Route: 042
     Dates: start: 20060901, end: 20060920
  4. CHINESE TRADITIONAL MEDICATION [Concomitant]
     Indication: HEPATIC CIRRHOSIS
     Dosage: 30ML PER DAY
     Route: 042
     Dates: start: 20060906, end: 20060930
  5. MOSAPRIDE [Concomitant]
     Indication: ANOREXIA
     Dosage: 5MG THREE TIMES PER DAY
     Route: 048
     Dates: start: 20060908, end: 20060920
  6. ESTAZOLAM [Concomitant]
     Dosage: 2MG PER DAY
     Route: 048
     Dates: start: 20060830

REACTIONS (5)
  - ALPHA 1 FOETOPROTEIN INCREASED [None]
  - ANOREXIA [None]
  - FATIGUE [None]
  - FLANK PAIN [None]
  - SPLENOMEGALY [None]
